FAERS Safety Report 9351557 (Version 2)
Quarter: 2013Q3

REPORT INFORMATION
  Report Type: Spontaneous
  Country: DE (occurrence: DE)
  Receive Date: 20130617
  Receipt Date: 20130920
  Transmission Date: 20140515
  Serious: Yes (Other)
  Sender: FDA-Public Use
  Company Number: PHHY2013DE061345

PATIENT
  Age: 80 Year
  Sex: Female
  Weight: 73 kg

DRUGS (1)
  1. AFINITOR [Suspect]
     Indication: BREAST CANCER METASTATIC
     Dosage: 10 MG, DAILY
     Dates: start: 201305

REACTIONS (1)
  - Coronary artery disease [Recovered/Resolved]
